FAERS Safety Report 7468372-1 (Version None)
Quarter: 2011Q2

REPORT INFORMATION
  Report Type: 
  Country: None (occurrence: None)
  Receive Date: 20110509
  Receipt Date: 20110428
  Transmission Date: 20111010
  Serious: Yes (Death, Hospitalization)
  Sender: FDA-Public Use
  Company Number: US-CELGENEUS-163-21880-11050060

PATIENT
  Age: 82 Year
  Sex: Female

DRUGS (10)
  1. METOPROLOL TARTRATE [Concomitant]
     Route: 065
  2. REVLIMID [Suspect]
     Indication: MULTIPLE MYELOMA
     Dosage: 7.5 MILLIGRAM
     Route: 048
     Dates: start: 20100501, end: 20101201
  3. PROCHLORPERAZINE TAB [Concomitant]
     Route: 065
  4. LORAZEPAM [Concomitant]
     Route: 065
  5. PHENOBARBITAL TAB [Concomitant]
     Route: 065
  6. HALOPERIDOL [Concomitant]
     Route: 065
  7. MORPHINE [Concomitant]
     Route: 065
  8. FENTANYL [Concomitant]
     Route: 065
  9. INDOMETHACIN [Concomitant]
     Route: 065
  10. NIFEDIPINE [Concomitant]
     Route: 065

REACTIONS (6)
  - MULTIPLE MYELOMA [None]
  - PANCYTOPENIA [None]
  - CARDIAC FAILURE CONGESTIVE [None]
  - HYPOGLYCAEMIA [None]
  - TREATMENT FAILURE [None]
  - RENAL FAILURE CHRONIC [None]
